FAERS Safety Report 8610949-1 (Version None)
Quarter: 2012Q2

REPORT INFORMATION
  Report Type: 
  Country: None (occurrence: None)
  Receive Date: 20120420
  Receipt Date: 20120216
  Transmission Date: 20120825
  Serious: Yes (Other)
  Sender: FDA-Public Use
  Company Number: WAES 1202USA02782

PATIENT
  Age: 17 Month
  Sex: Male

DRUGS (3)
  1. PULMICORT [Concomitant]
  2. SINGULAIR [Suspect]
     Indication: ASTHMA
     Dosage: 4 MG/DAILY/PO
     Route: 048
  3. ALBUTEROL [Concomitant]

REACTIONS (2)
  - CONVULSION [None]
  - INCORRECT DRUG DOSAGE FORM ADMINISTERED [None]
